FAERS Safety Report 14238192 (Version 1)
Quarter: 2017Q4

REPORT INFORMATION
  Report Type: Spontaneous
  Country: US (occurrence: US)
  Receive Date: 20171130
  Receipt Date: 20171130
  Transmission Date: 20180321
  Serious: No
  Sender: FDA-Public Use
  Company Number: US-BRISTOL-MYERS SQUIBB COMPANY-BMS-2017-108575

PATIENT
  Sex: Male
  Weight: 73.47 kg

DRUGS (2)
  1. TRAMADOL. [Concomitant]
     Active Substance: TRAMADOL
     Indication: PRODUCT USED FOR UNKNOWN INDICATION
     Route: 065
  2. SPRYCEL [Suspect]
     Active Substance: DASATINIB
     Indication: ACUTE LYMPHOCYTIC LEUKAEMIA
     Dosage: 100 MG, QWK
     Route: 048
     Dates: start: 2012

REACTIONS (5)
  - Off label use [Unknown]
  - Neck pain [Unknown]
  - Headache [Unknown]
  - Haemoglobin decreased [Unknown]
  - Fatigue [Unknown]
